FAERS Safety Report 6960194-0 (Version None)
Quarter: 2010Q3

REPORT INFORMATION
  Report Type: 
  Country: None (occurrence: None)
  Receive Date: 20100901
  Receipt Date: 20100825
  Transmission Date: 20110219
  Serious: Yes (Death)
  Sender: FDA-Public Use
  Company Number: US-SANOFI-AVENTIS-2010SA051522

PATIENT
  Age: 68 Year
  Sex: Male
  Weight: 105 kg

DRUGS (11)
  1. JEVTANA [Suspect]
     Indication: PROSTATE CANCER
     Route: 042
     Dates: start: 20100727, end: 20100727
  2. DIPHENHYDRAMINE HYDROCHLORIDE [Concomitant]
     Indication: PREMEDICATION
     Route: 048
  3. DEXAMETHASONE [Concomitant]
     Indication: PREMEDICATION
  4. PEPCID [Concomitant]
     Indication: PREMEDICATION
     Route: 048
  5. ASPIRIN [Concomitant]
     Route: 048
  6. ZOFRAN [Concomitant]
     Indication: PREMEDICATION
     Route: 048
  7. PREDNISONE [Concomitant]
  8. MULTI-VITAMINS [Concomitant]
  9. FOLIC ACID [Concomitant]
  10. HYDROCODONE [Concomitant]
  11. DURAGESIC-100 [Concomitant]

REACTIONS (1)
  - DEATH [None]
